FAERS Safety Report 6683947-5 (Version None)
Quarter: 2010Q2

REPORT INFORMATION
  Report Type: 
  Country: None (occurrence: None)
  Receive Date: 20100416
  Receipt Date: 20100406
  Transmission Date: 20101027
  Serious: Yes (Hospitalization)
  Sender: FDA-Public Use
  Company Number: JP-PFIZER INC-2010044260

PATIENT
  Age: 83 Year
  Sex: Female

DRUGS (2)
  1. SELARA [Suspect]
     Dosage: 50 MG, DAILY
     Route: 048
     Dates: start: 20091205
  2. URSO 250 [Suspect]
     Dosage: UNK
     Dates: end: 20100405

REACTIONS (2)
  - BLOOD CREATINE PHOSPHOKINASE INCREASED [None]
  - MYALGIA [None]
